FAERS Safety Report 19983023 (Version 1)
Quarter: 2021Q4

REPORT INFORMATION
  Report Type: Spontaneous
  Country: US (occurrence: US)
  Receive Date: 20211021
  Receipt Date: 20211021
  Transmission Date: 20220303
  Serious: No
  Sender: FDA-Public Use
  Company Number: None

PATIENT
  Age: 56 Year
  Sex: Male
  Weight: 90 kg

DRUGS (1)
  1. DEFINITY [Suspect]
     Active Substance: PERFLUTREN
     Indication: Echocardiogram
     Dates: start: 20211021, end: 20211021

REACTIONS (5)
  - Chest discomfort [None]
  - Chest discomfort [None]
  - Feeling hot [None]
  - Spinal pain [None]
  - Back pain [None]

NARRATIVE: CASE EVENT DATE: 20211021
